FAERS Safety Report 6523189-7 (Version None)
Quarter: 2009Q4

REPORT INFORMATION
  Report Type: 
  Country: None (occurrence: None)
  Receive Date: 20091222
  Receipt Date: 20091204
  Transmission Date: 20100525
  Serious: Yes (Life-Threatening, Hospitalization)
  Sender: FDA-Public Use
  Company Number: DSA_40549_2009

PATIENT
  Age: 50 Year
  Sex: Female

DRUGS (1)
  1. ENALAPRIL MALEATE [Suspect]
     Indication: HYPERTENSION
     Dosage: 5 MG QD ORAL
     Route: 048
     Dates: start: 20070101, end: 20090420

REACTIONS (12)
  - ALANINE AMINOTRANSFERASE INCREASED [None]
  - ASPARTATE AMINOTRANSFERASE INCREASED [None]
  - AUTOIMMUNE PANCREATITIS [None]
  - BLOOD CALCIUM INCREASED [None]
  - DIARRHOEA [None]
  - DUODENITIS [None]
  - GAMMA-GLUTAMYLTRANSFERASE INCREASED [None]
  - GASTRITIS [None]
  - PANCREATIC CARCINOMA [None]
  - PANCREATIC PSEUDOCYST [None]
  - PANCREATITIS NECROTISING [None]
  - VOMITING [None]
